FAERS Safety Report 8167844-4 (Version None)
Quarter: 2012Q1

REPORT INFORMATION
  Report Type: 
  Country: None (occurrence: None)
  Receive Date: 20120222
  Receipt Date: 20120207
  Transmission Date: 20120608
  Serious: Yes (Hospitalization)
  Sender: FDA-Public Use
  Company Number: 1000028444

PATIENT
  Age: 50 Year
  Sex: Male

DRUGS (6)
  1. ZETOMAX (LISINOPRIL) (LISINOPRIL) [Concomitant]
  2. ADCO-AMOCLAV (AMOXICILLIN TRIHYDRATE, CLAVULANATE POTASSIUM) (AMOXICIL [Concomitant]
  3. KETEK (CLARITHROMYCIN) (CLARITHROMYCIN) [Concomitant]
  4. ACC (N-ACETYLCYSTEINE) (N-ACETYLCYSTEINE) [Concomitant]
  5. ALTOSEC (OMEPRAZOLE) (OMEPRAZOLE) [Concomitant]
  6. FOSFOMYCIN (FOSFOMYCIN TROMETAMOL) (3 GRAM, GRANULATE) [Suspect]
     Indication: URINARY TRACT INFECTION
     Dosage: (3 GM, ONCE), ORAL
     Route: 048
     Dates: start: 20110901, end: 20110901

REACTIONS (8)
  - RED BLOOD CELL SEDIMENTATION RATE INCREASED [None]
  - BLOOD ALBUMIN DECREASED [None]
  - BLOOD POTASSIUM DECREASED [None]
  - BLOOD BICARBONATE INCREASED [None]
  - NEUTROPHIL COUNT INCREASED [None]
  - PROSTATIC SPECIFIC ANTIGEN INCREASED [None]
  - HEPATITIS [None]
  - WHITE BLOOD CELL COUNT INCREASED [None]
